FAERS Safety Report 9357940 (Version 1)
Quarter: 2013Q2

REPORT INFORMATION
  Report Type: Spontaneous
  Country: BR (occurrence: BR)
  Receive Date: 20130620
  Receipt Date: 20130620
  Transmission Date: 20140414
  Serious: Yes (Other)
  Sender: FDA-Public Use
  Company Number: BR-PFIZER INC-2013184640

PATIENT
  Age: 77 Year
  Sex: Female
  Weight: 58 kg

DRUGS (5)
  1. ATENOLOL [Suspect]
     Indication: HYPERTENSION
     Route: 065
  2. ATENOLOL [Suspect]
     Indication: ARRHYTHMIA
  3. NEXIUM [Suspect]
     Indication: GASTROOESOPHAGEAL REFLUX DISEASE
     Dosage: 40 MG, 1X/DAY
     Route: 048
     Dates: start: 201303
  4. EUTHYROX [Concomitant]
     Indication: HYPOTHYROIDISM
     Route: 065
  5. MICARDIS [Concomitant]
     Indication: ARRHYTHMIA
     Route: 065

REACTIONS (2)
  - Carotid artery occlusion [Unknown]
  - Fatigue [Unknown]
